FAERS Safety Report 19605078 (Version 2)
Quarter: 2021Q3

REPORT INFORMATION
  Report Type: Spontaneous
  Country: CO (occurrence: CO)
  Receive Date: 20210723
  Receipt Date: 20210816
  Transmission Date: 20211014
  Serious: Yes (Other)
  Sender: FDA-Public Use
  Company Number: CO-AMGEN-COLSP2021111090

PATIENT
  Age: 78 Year
  Sex: Female
  Weight: 44 kg

DRUGS (3)
  1. CALCIUM FOLINATE [Concomitant]
     Active Substance: LEUCOVORIN CALCIUM
     Indication: RECTAL CANCER
     Dosage: 520 MILLIGRAM (EVERY 15 DAYS)
     Route: 065
     Dates: end: 20210415
  2. MVASI [Suspect]
     Active Substance: BEVACIZUMAB-AWWB
     Indication: RECTAL CANCER
     Dosage: 220 MILLIGRAM, Q2WK
     Route: 065
     Dates: end: 20210524
  3. FLUOROURACIL. [Concomitant]
     Active Substance: FLUOROURACIL
     Indication: RECTAL CANCER
     Dosage: 2080 MILLIGRAM (EVERY 15 DAYS)
     Route: 065
     Dates: end: 20210415

REACTIONS (3)
  - Metastases to spine [Not Recovered/Not Resolved]
  - Atelectasis [Unknown]
  - Diarrhoea [Not Recovered/Not Resolved]

NARRATIVE: CASE EVENT DATE: 20210706
